FAERS Safety Report 10377129 (Version 1)
Quarter: 2014Q3

REPORT INFORMATION
  Report Type: Spontaneous
  Country: DK (occurrence: DK)
  Receive Date: 20140812
  Receipt Date: 20140812
  Transmission Date: 20150326
  Serious: Yes (Other)
  Sender: FDA-Public Use
  Company Number: DK-ACCORD-025255

PATIENT
  Age: 26 Year
  Sex: Female
  Weight: 58 kg

DRUGS (2)
  1. LAMOTRIGINE. [Concomitant]
     Active Substance: LAMOTRIGINE
     Indication: EPILEPSY
     Dates: start: 2002
  2. LEVETIRACETAM ACCORD [Suspect]
     Active Substance: LEVETIRACETAM
     Indication: EPILEPSY
     Dosage: STRENGTH:500 MG
     Route: 048
     Dates: start: 20130118

REACTIONS (1)
  - Loss of libido [Not Recovered/Not Resolved]

NARRATIVE: CASE EVENT DATE: 20130201
